FAERS Safety Report 23998671 (Version 1)
Quarter: 2024Q2

REPORT INFORMATION
  Report Type: Spontaneous
  Country: US (occurrence: US)
  Receive Date: 20240621
  Receipt Date: 20240621
  Transmission Date: 20240715
  Serious: Yes (Other)
  Sender: FDA-Public Use
  Company Number: US-APOTEX-2024AP007332

PATIENT
  Age: 76 Year
  Sex: Female

DRUGS (1)
  1. TAMOXIFEN [Suspect]
     Active Substance: TAMOXIFEN
     Indication: Lobular breast carcinoma in situ
     Dosage: 20 MILLIGRAM, QD (TOTAL DOSE 36.5 G)
     Route: 048

REACTIONS (1)
  - Macular hole [Not Recovered/Not Resolved]
